FAERS Safety Report 19825288 (Version 2)
Quarter: 2021Q3

REPORT INFORMATION
  Report Type: Spontaneous
  Country: JP (occurrence: JP)
  Receive Date: 20210914
  Receipt Date: 20210921
  Transmission Date: 20211014
  Serious: Yes (Other)
  Sender: FDA-Public Use
  Company Number: JP-ORGANON-O2108JPN000469J

PATIENT
  Age: 39 Year
  Sex: Female

DRUGS (2)
  1. DESALEX TABLETS 5MG [Suspect]
     Active Substance: DESLORATADINE
     Indication: RHINITIS ALLERGIC
     Dosage: 5 MILLIGRAM, QD
     Route: 048
     Dates: start: 20210825, end: 20210825
  2. LASVIC [Suspect]
     Active Substance: LASCUFLOXACIN HYDROCHLORIDE
     Indication: SINUSITIS
     Dosage: 75 MILLIGRAM, QD
     Route: 048
     Dates: start: 20210825, end: 20210825

REACTIONS (1)
  - Anaphylactic shock [Recovered/Resolved]

NARRATIVE: CASE EVENT DATE: 20210825
